FAERS Safety Report 8982823 (Version 1)
Quarter: 2012Q4

REPORT INFORMATION
  Report Type: Report from Study
  Country: NL (occurrence: NL)
  Receive Date: 20121221
  Receipt Date: 20121221
  Transmission Date: 20130627
  Serious: Yes (Death, Life-Threatening, Hospitalization)
  Sender: FDA-Public Use
  Company Number: NL-BAXTER-2012BAX027341

PATIENT
  Age: 76 Year
  Sex: Male
  Weight: 70 kg

DRUGS (13)
  1. ENDOXAN I.V., POEDER VOOR OPLOSSING VOOR INJECTIE 200, 500, 1000 MG [Suspect]
     Indication: DIFFUSE LARGE B-CELL LYMPHOMA
     Route: 042
     Dates: start: 20091120
  2. ENDOXAN I.V., POEDER VOOR OPLOSSING VOOR INJECTIE 200, 500, 1000 MG [Suspect]
     Route: 042
     Dates: start: 20100129
  3. RITUXIMAB [Suspect]
     Indication: DIFFUSE LARGE B-CELL LYMPHOMA
     Route: 042
     Dates: start: 20091120
  4. RITUXIMAB [Suspect]
     Route: 042
     Dates: start: 20091127
  5. RITUXIMAB [Suspect]
     Dosage: REDUCED FROM 671 MG TO 645 MG
     Route: 042
     Dates: start: 20100129
  6. PREDNISONE [Suspect]
     Indication: DIFFUSE LARGE B-CELL LYMPHOMA
     Route: 048
     Dates: start: 20091120
  7. PREDNISONE [Suspect]
     Route: 048
     Dates: start: 20100129
  8. DOXORUBICIN [Suspect]
     Indication: DIFFUSE LARGE B-CELL LYMPHOMA
     Route: 042
     Dates: start: 20091120
  9. DOXORUBICIN [Suspect]
     Route: 042
     Dates: start: 20100129
  10. VINCRISTINE [Suspect]
     Indication: DIFFUSE LARGE B-CELL LYMPHOMA
     Route: 042
     Dates: start: 20091120
  11. VINCRISTINE [Suspect]
     Route: 042
     Dates: start: 20100129
  12. G-CSF [Suspect]
     Indication: DIFFUSE LARGE B-CELL LYMPHOMA
     Route: 058
     Dates: start: 20091121
  13. G-CSF [Suspect]
     Route: 058
     Dates: start: 20100130

REACTIONS (7)
  - Ventricular tachycardia [Fatal]
  - Respiratory failure [Fatal]
  - Atrial fibrillation [Fatal]
  - Febrile neutropenia [Recovered/Resolved]
  - Ileus [Recovered/Resolved]
  - Pyrexia [Unknown]
  - Abdominal pain lower [Recovered/Resolved]
